FAERS Safety Report 7959414-5 (Version None)
Quarter: 2011Q4

REPORT INFORMATION
  Report Type: 
  Country: None (occurrence: None)
  Receive Date: 20111201
  Receipt Date: 20111117
  Transmission Date: 20120403
  Serious: Yes (Death)
  Sender: FDA-Public Use
  Company Number: 2011S1000361

PATIENT
  Sex: Female

DRUGS (2)
  1. INOVENT (DELIVERY SYSTEM) [Suspect]
  2. INOMAX [Suspect]
     Indication: ACUTE RESPIRATORY DISTRESS SYNDROME
     Dosage: INH
     Route: 055
     Dates: start: 20111110

REACTIONS (2)
  - OXYGEN SATURATION DECREASED [None]
  - DEVICE FAILURE [None]
